FAERS Safety Report 6790681-X (Version None)
Quarter: 2010Q2

REPORT INFORMATION
  Report Type: 
  Country: None (occurrence: None)
  Receive Date: 20100624
  Receipt Date: 20100621
  Transmission Date: 20101027
  Serious: Yes (Death, Life-Threatening, Other)
  Sender: FDA-Public Use
  Company Number: JP-CEPHALON-2010002525

PATIENT
  Sex: Female
  Weight: 49 kg

DRUGS (7)
  1. FENTORA [Suspect]
     Route: 002
  2. SUNITINIB MALATE [Suspect]
     Indication: RENAL CELL CARCINOMA
     Route: 048
     Dates: start: 20090401, end: 20090417
  3. AREDIA [Suspect]
  4. NOVAMIN [Concomitant]
  5. OXYCONTIN [Concomitant]
  6. MAG-LOX [Concomitant]
  7. SORAFENIB [Concomitant]
     Dates: start: 20080526, end: 20090331

REACTIONS (6)
  - CANCER PAIN [None]
  - DISEASE PROGRESSION [None]
  - GENERAL PHYSICAL HEALTH DETERIORATION [None]
  - HYPERCALCAEMIA [None]
  - PLATELET COUNT DECREASED [None]
  - PLEURAL EFFUSION [None]
